FAERS Safety Report 16675066 (Version 4)
Quarter: 2021Q1

REPORT INFORMATION
  Report Type: Other
  Country: US (occurrence: US)
  Receive Date: 20190806
  Receipt Date: 20210301
  Transmission Date: 20210419
  Serious: Yes (Other)
  Sender: FDA-Public Use
  Company Number: US-ROCHE-2365142

PATIENT
  Age: 63 Year
  Sex: Male
  Weight: 108.96 kg

DRUGS (16)
  1. OCREVUS [Suspect]
     Active Substance: OCRELIZUMAB
     Dosage: 17/JUL/2019, 22/JAN/2020
     Route: 042
     Dates: start: 20190719
  2. MACROBID [Concomitant]
     Active Substance: NITROFURANTOIN\NITROFURANTOIN MONOHYDRATE
     Dosage: 1 BID 30 DAYS
     Route: 048
  3. OCREVUS [Suspect]
     Active Substance: OCRELIZUMAB
     Route: 042
     Dates: start: 20180124
  4. EXCEDRIN (UNITED STATES) [Concomitant]
     Indication: PAIN
     Dosage: YES
     Route: 065
  5. OCREVUS [Suspect]
     Active Substance: OCRELIZUMAB
     Dosage: 600 MG EVERY SIX MONTHS?ONGOING YES
     Route: 042
     Dates: start: 201806
  6. CRANBERRY EXTRACT [Concomitant]
     Active Substance: CRANBERRY
     Indication: URINARY TRACT INFECTION
     Dosage: ONGOING: YES
     Route: 048
  7. OCREVUS [Suspect]
     Active Substance: OCRELIZUMAB
     Indication: RELAPSING MULTIPLE SCLEROSIS
     Dosage: 300 MG DAY 1 AND DAY 15?DATE OF TREATMENT: 22/JAN/2020, 14/AUG/2020, //2021
     Route: 042
     Dates: start: 20170109
  8. ALEVE [Concomitant]
     Active Substance: NAPROXEN SODIUM
     Indication: PAIN
     Dosage: YES
     Route: 065
  9. NAPROXEN. [Concomitant]
     Active Substance: NAPROXEN
     Route: 065
  10. OCREVUS [Suspect]
     Active Substance: OCRELIZUMAB
     Route: 042
     Dates: start: 20180104
  11. OCREVUS [Suspect]
     Active Substance: OCRELIZUMAB
     Route: 042
     Dates: start: 2018
  12. CITALOPRAM [Concomitant]
     Active Substance: CITALOPRAM HYDROBROMIDE
     Indication: DEPRESSION
     Dosage: ONGOING YES
     Route: 048
     Dates: start: 2006
  13. ASA [Concomitant]
     Active Substance: ASPIRIN
  14. OCREVUS [Suspect]
     Active Substance: OCRELIZUMAB
     Indication: MULTIPLE SCLEROSIS RELAPSE
     Route: 042
     Dates: start: 20170124
  15. D?MANNOSE [Concomitant]
     Indication: URINARY TRACT INFECTION
     Dosage: ONGOING: YES
     Route: 048
  16. BETASERON [Concomitant]
     Active Substance: INTERFERON BETA-1B

REACTIONS (12)
  - Hypertension [Recovered/Resolved]
  - Rash [Not Recovered/Not Resolved]
  - Cold sweat [Recovered/Resolved]
  - Arthralgia [Recovered/Resolved]
  - Cough [Not Recovered/Not Resolved]
  - Urinary tract infection [Not Recovered/Not Resolved]
  - Back pain [Not Recovered/Not Resolved]
  - Dyspnoea [Recovered/Resolved]
  - Fall [Unknown]
  - Pain [Recovered/Resolved]
  - Myalgia [Recovered/Resolved]
  - White blood cell count increased [Unknown]

NARRATIVE: CASE EVENT DATE: 2018
